FAERS Safety Report 5195357-0 (Version None)
Quarter: 2006Q4

REPORT INFORMATION
  Report Type: 
  Country: None (occurrence: None)
  Receive Date: 20061024
  Receipt Date: 20060626
  Transmission Date: 20070319
  Serious: Yes (Hospitalization)
  Sender: FDA-Public Use
  Company Number: USA-2006-0024519

PATIENT
  Sex: Female

DRUGS (2)
  1. PALLADONE [Suspect]
     Dosage: 12 MG, DAILY
  2. KLONOPIN [Concomitant]

REACTIONS (5)
  - DRUG INEFFECTIVE [None]
  - HYPOXIA [None]
  - OVERDOSE [None]
  - PALPITATIONS [None]
  - SOMNOLENCE [None]
